FAERS Safety Report 4390612-6 (Version None)
Quarter: 2004Q2

REPORT INFORMATION
  Report Type: 
  Country: None (occurrence: None)
  Receive Date: 20040628
  Receipt Date: 20040622
  Transmission Date: 20050107
  Serious: Yes (Other)
  Sender: FDA-Public Use
  Company Number: US-JNJFOC-20040605329

PATIENT
  Age: 4 Year
  Sex: Male

DRUGS (1)
  1. MOTRIN [Suspect]
     Indication: PYREXIA

REACTIONS (7)
  - DRUG HYPERSENSITIVITY [None]
  - DYSPNOEA [None]
  - EYE SWELLING [None]
  - GRAND MAL CONVULSION [None]
  - OEDEMA MOUTH [None]
  - PETIT MAL EPILEPSY [None]
  - SWELLING FACE [None]
